FAERS Safety Report 7588591-3 (Version None)
Quarter: 2011Q2

REPORT INFORMATION
  Report Type: 
  Country: None (occurrence: None)
  Receive Date: 20110603
  Receipt Date: 20110407
  Transmission Date: 20111010
  Serious: No
  Sender: FDA-Public Use
  Company Number: 2011SP015845

PATIENT
  Age: 49 Year
  Sex: Female

DRUGS (10)
  1. SAPHRIS [Suspect]
     Indication: BIPOLAR DISORDER
     Dosage: 5 MG;QPM;SL ; 10 MG ; 10 MG
     Route: 060
     Dates: start: 20110412
  2. SAPHRIS [Suspect]
     Indication: BIPOLAR DISORDER
     Dosage: 5 MG;QPM;SL ; 10 MG ; 10 MG
     Route: 060
     Dates: start: 20101001, end: 20101001
  3. SAPHRIS [Suspect]
     Indication: BIPOLAR DISORDER
     Dosage: 5 MG;QPM;SL ; 10 MG ; 10 MG
     Route: 060
     Dates: start: 20110401
  4. SEROQUEL [Suspect]
     Indication: PRODUCT USED FOR UNKNOWN INDICATION
     Dosage: 600 MG
     Dates: end: 20101001
  5. DILAUDID [Concomitant]
  6. COMBIPATCH [Concomitant]
  7. NEURONTIN [Concomitant]
  8. ANZEMET [Concomitant]
  9. KLONOPIN [Concomitant]
  10. PROPRANOLOL [Concomitant]

REACTIONS (5)
  - UNDERDOSE [None]
  - INSOMNIA [None]
  - BLADDER PAIN [None]
  - INAPPROPRIATE SCHEDULE OF DRUG ADMINISTRATION [None]
  - DYSPNOEA [None]
